FAERS Safety Report 5334686-4 (Version None)
Quarter: 2007Q2

REPORT INFORMATION
  Report Type: 
  Country: None (occurrence: None)
  Receive Date: 20070521
  Receipt Date: 20070504
  Transmission Date: 20071010
  Serious: Yes (Death)
  Sender: FDA-Public Use
  Company Number: DSA_25085_2004

PATIENT
  Age: 32 Year
  Sex: Female

DRUGS (4)
  1. DILTIAZEM [Suspect]
     Dosage: (ORAL)
     Route: 048
  2. CLONAZEPAM [Suspect]
     Dosage: (ORAL)
     Route: 048
  3. PAROXETINE [Concomitant]
  4. QUETIAPINE [Concomitant]

REACTIONS (10)
  - ATRIOVENTRICULAR BLOCK COMPLETE [None]
  - CHEST PAIN [None]
  - COMPLETED SUICIDE [None]
  - DIZZINESS [None]
  - DRUG SCREEN POSITIVE [None]
  - ELECTROCARDIOGRAM QRS COMPLEX SHORTENED [None]
  - HEART RATE DECREASED [None]
  - HYPOTENSION [None]
  - NAUSEA [None]
  - VOMITING [None]
